FAERS Safety Report 4449662-3 (Version None)
Quarter: 2004Q3

REPORT INFORMATION
  Report Type: 
  Country: None (occurrence: None)
  Receive Date: 20040913
  Receipt Date: 20040913
  Transmission Date: 20050211
  Serious: Yes (Hospitalization)
  Sender: FDA-Public Use
  Company Number: None

PATIENT
  Age: 58 Year
  Sex: Male
  Weight: 90.2 kg

DRUGS (3)
  1. CELECOXIB 200 MG. TAKE 2 IN AM AND 2 IN PM [Suspect]
     Indication: CARCINOMA
     Dosage: SEE IMAGE
     Dates: start: 20040823, end: 20040904
  2. CARBOPLATIN [Concomitant]
  3. TAXOL [Concomitant]

REACTIONS (4)
  - DEHYDRATION [None]
  - NAUSEA [None]
  - PYREXIA [None]
  - RASH PUSTULAR [None]
